FAERS Safety Report 11430415 (Version 1)
Quarter: 2015Q3

REPORT INFORMATION
  Report Type: Spontaneous
  Country: US (occurrence: US)
  Receive Date: 20150828
  Receipt Date: 20150828
  Transmission Date: 20151125
  Serious: No
  Sender: FDA-Public Use
  Company Number: US-ROCHE-1161443

PATIENT
  Sex: Male

DRUGS (7)
  1. ADVIL [Concomitant]
     Active Substance: IBUPROFEN
     Indication: ARTHRALGIA
  2. ADVIL [Concomitant]
     Active Substance: IBUPROFEN
     Indication: MYALGIA
  3. RIBAVIRIN. [Suspect]
     Active Substance: RIBAVIRIN
     Indication: CHRONIC HEPATITIS C
     Dosage: IN DIVIDED DOSE
     Route: 048
     Dates: start: 20121029
  4. TELAPREVIR [Suspect]
     Active Substance: TELAPREVIR
     Indication: CHRONIC HEPATITIS C
     Route: 065
     Dates: start: 20121029, end: 20130114
  5. CELEBREX [Concomitant]
     Active Substance: CELECOXIB
     Indication: MYALGIA
  6. PEGASYS [Suspect]
     Active Substance: PEGINTERFERON ALFA-2A
     Indication: CHRONIC HEPATITIS C
     Route: 058
     Dates: start: 20121029
  7. CELEBREX [Concomitant]
     Active Substance: CELECOXIB
     Indication: ARTHRALGIA

REACTIONS (36)
  - Cough [Recovering/Resolving]
  - Weight increased [Unknown]
  - Tinnitus [Unknown]
  - Arthralgia [Unknown]
  - Insomnia [Unknown]
  - Vertigo [Unknown]
  - Dysgeusia [Unknown]
  - Negative thoughts [Unknown]
  - Anal pruritus [Unknown]
  - Weight decreased [Unknown]
  - Chest pain [Unknown]
  - Pruritus [Unknown]
  - Oropharyngeal pain [Unknown]
  - Cough [Unknown]
  - Depression [Recovering/Resolving]
  - Dry skin [Unknown]
  - Agitation [Unknown]
  - Nasopharyngitis [Unknown]
  - Anorectal discomfort [Unknown]
  - Pruritus generalised [Unknown]
  - Vision blurred [Unknown]
  - Influenza like illness [Not Recovered/Not Resolved]
  - Anaemia [Unknown]
  - Dyspnoea exertional [Unknown]
  - Injection site reaction [Unknown]
  - Visual impairment [Unknown]
  - Malaise [Unknown]
  - Pyrexia [Unknown]
  - Myalgia [Unknown]
  - Tachycardia [Unknown]
  - Dry mouth [Unknown]
  - Haemorrhoids [Unknown]
  - Rash [Unknown]
  - Pain [Unknown]
  - Feeling abnormal [Unknown]
  - Erectile dysfunction [Unknown]
